FAERS Safety Report 24706685 (Version 1)
Quarter: 2024Q4

REPORT INFORMATION
  Report Type: Spontaneous
  Country: ES (occurrence: ES)
  Receive Date: 20241206
  Receipt Date: 20241206
  Transmission Date: 20250115
  Serious: Yes (Death, Hospitalization, Other)
  Sender: SANDOZ
  Company Number: ES-SZ09-PHHY2015ES064815

PATIENT
  Age: 61 Year
  Sex: Male

DRUGS (26)
  1. AMIKACIN [Suspect]
     Active Substance: AMIKACIN
     Indication: Cholangitis
     Dosage: UNK
     Route: 065
  2. AMPICILLIN [Suspect]
     Active Substance: AMPICILLIN
     Indication: Bacterial infection
     Dosage: UNK
     Route: 065
  3. AMIKACIN SULFATE [Suspect]
     Active Substance: AMIKACIN SULFATE
     Indication: Bacterial infection
     Dosage: UNK
     Route: 065
     Dates: start: 2009
  4. AMPICILLIN TRIHYDRATE [Suspect]
     Active Substance: AMPICILLIN TRIHYDRATE
     Indication: Bacterial infection
     Dosage: UNK
     Route: 065
  5. CEFTAZIDIME [Suspect]
     Active Substance: CEFTAZIDIME
     Indication: Cholangitis acute
     Dosage: UNK
     Route: 065
  6. COLISTIN [Suspect]
     Active Substance: COLISTIN
     Indication: Bacterial infection
     Dosage: UNK
     Route: 065
  7. DORIPENEM [Suspect]
     Active Substance: DORIPENEM
     Indication: Product used for unknown indication
     Dosage: UNK
     Route: 065
  8. FLUCONAZOLE [Suspect]
     Active Substance: FLUCONAZOLE
     Indication: Cholangitis
     Dosage: 100 MG, QD, DOSE OF 100 MG/DAY
     Route: 065
  9. FLUCONAZOLE [Suspect]
     Active Substance: FLUCONAZOLE
     Indication: Antifungal prophylaxis
  10. FOSFOMYCIN [Suspect]
     Active Substance: FOSFOMYCIN
     Indication: Product used for unknown indication
     Dosage: UNK
     Route: 065
  11. MEROPENEM [Suspect]
     Active Substance: MEROPENEM
     Indication: Cholangitis
     Dosage: UNK
     Route: 065
  12. METRONIDAZOLE [Suspect]
     Active Substance: METRONIDAZOLE
     Indication: Product used for unknown indication
     Dosage: UNK
     Route: 065
  13. PIPERACILLIN AND TAZOBACTAM [Suspect]
     Active Substance: PIPERACILLIN SODIUM\TAZOBACTAM SODIUM
     Indication: Product used for unknown indication
     Dosage: UNK
     Route: 065
  14. TEICOPLANIN [Suspect]
     Active Substance: TEICOPLANIN
     Indication: Product used for unknown indication
     Dosage: UNK
     Route: 065
  15. VANCOMYCIN [Suspect]
     Active Substance: VANCOMYCIN
     Indication: Cholangitis
     Dosage: UNK
     Route: 065
  16. AMIKACIN [Concomitant]
     Active Substance: AMIKACIN
     Indication: Enterococcal infection
     Dosage: UNK
     Route: 065
     Dates: start: 2009
  17. FOSFOMYCIN [Concomitant]
     Active Substance: FOSFOMYCIN
     Indication: Enterococcal infection
     Dosage: UNK
     Route: 065
  18. FOSFOMYCIN [Concomitant]
     Active Substance: FOSFOMYCIN
     Indication: Cholangitis acute
  19. MEROPENEM [Concomitant]
     Active Substance: MEROPENEM
     Indication: Bacterial infection
     Dosage: UNK
     Route: 042
     Dates: start: 2009
  20. METRONIDAZOLE [Concomitant]
     Active Substance: METRONIDAZOLE
     Indication: Bacterial infection
     Dosage: UNK
     Route: 065
  21. PIPERACILLIN SODIUM\TAZOBACTAM SODIUM [Concomitant]
     Active Substance: PIPERACILLIN SODIUM\TAZOBACTAM SODIUM
     Indication: Bacterial infection
     Dosage: UNK
     Route: 065
     Dates: start: 2009
  22. PREDNISONE [Concomitant]
     Active Substance: PREDNISONE
     Indication: Enterococcal infection
     Dosage: UNK
     Route: 065
  23. TACROLIMUS [Concomitant]
     Active Substance: TACROLIMUS
     Indication: Enterococcal infection
     Dosage: UNK
     Route: 065
  24. TEICOPLANIN [Concomitant]
     Active Substance: TEICOPLANIN
     Indication: Bacterial infection
     Dosage: UNK
     Route: 065
     Dates: start: 2009
  25. VANCOMYCIN [Concomitant]
     Active Substance: VANCOMYCIN
     Indication: Enterococcal infection
     Dosage: UNK
     Route: 065
     Dates: start: 2009
  26. ENZYME NOS [Suspect]
     Active Substance: UNSPECIFIED INGREDIENT

REACTIONS (13)
  - Multiple organ dysfunction syndrome [Fatal]
  - Chronic hepatic failure [Fatal]
  - Oedema peripheral [Unknown]
  - Ascites [Unknown]
  - Systemic candida [Recovered/Resolved]
  - Liver abscess [Not Recovered/Not Resolved]
  - Drug resistance [Unknown]
  - Pyrexia [Recovered/Resolved]
  - Candida infection [Recovered/Resolved]
  - Haematological infection [Recovered/Resolved]
  - Systemic candida [Recovered/Resolved]
  - Pathogen resistance [Unknown]
  - Pathogen resistance [Unknown]
